FAERS Safety Report 24618328 (Version 1)
Quarter: 2024Q4

REPORT INFORMATION
  Report Type: Spontaneous
  Country: US (occurrence: None)
  Receive Date: 20241113
  Receipt Date: 20241113
  Transmission Date: 20250115
  Serious: No
  Sender: Public
  Company Number: None

PATIENT
  Age: 63 Year
  Sex: Female
  Weight: 68 kg

DRUGS (1)
  1. CYCLOBENZAPRINE HYDROCHLORIDE [Suspect]
     Active Substance: CYCLOBENZAPRINE HYDROCHLORIDE
     Indication: Back pain
     Dosage: FREQUENCY : TWICE A DAY;?
     Route: 048
     Dates: start: 20201215, end: 20240919

REACTIONS (2)
  - Confusional state [None]
  - Dizziness [None]

NARRATIVE: CASE EVENT DATE: 20240919
